FAERS Safety Report 5056785-7 (Version None)
Quarter: 2006Q2

REPORT INFORMATION
  Report Type: 
  Country: None (occurrence: None)
  Receive Date: 20060619
  Receipt Date: 20050613
  Transmission Date: 20061013
  Serious: Yes (Hospitalization, Other)
  Sender: FDA-Public Use
  Company Number: US-2005-010540

PATIENT
  Age: 55 Year
  Sex: Male
  Weight: 77.1 kg

DRUGS (10)
  1. FLUDARA [Suspect]
     Indication: CHRONIC LYMPHOCYTIC LEUKAEMIA
     Dosage: 50 MG, 1X/D, INTRAVENOUS
     Route: 042
     Dates: start: 20050401, end: 20050401
  2. FLUDARA [Suspect]
     Indication: CHRONIC LYMPHOCYTIC LEUKAEMIA
     Dosage: 50 MG, 1X/D, INTRAVENOUS
     Route: 042
     Dates: start: 20050328, end: 20050402
  3. RITUXIMAB (RITUXIMAB) [Suspect]
     Indication: CHRONIC LYMPHOCYTIC LEUKAEMIA
     Dosage: 800 MG, INTRAVENOUS
     Route: 042
     Dates: start: 20050328, end: 20050328
  4. RITUXIMAB (RITUXIMAB) [Suspect]
     Indication: CHRONIC LYMPHOCYTIC LEUKAEMIA
     Dosage: 800 MG, INTRAVENOUS
     Route: 042
     Dates: start: 20050401, end: 20050401
  5. ALLOPURINOL [Suspect]
     Dosage: 300 MG, 1X/D, ORAL
     Route: 048
     Dates: start: 20050324
  6. DOLASETRON MESILATE (DOLASETRON MESILATE) [Concomitant]
  7. DEXAMETHASONE [Concomitant]
  8. SERTRALINE [Concomitant]
  9. TIMOLOL MALEATE [Concomitant]
  10. LORATADINE [Concomitant]

REACTIONS (4)
  - BLOOD PRESSURE DECREASED [None]
  - DRUG HYPERSENSITIVITY [None]
  - INFECTION [None]
  - NEUTROPENIA [None]
